FAERS Safety Report 5229946-1 (Version None)
Quarter: 2007Q1

REPORT INFORMATION
  Report Type: 
  Country: None (occurrence: None)
  Receive Date: 20070206
  Receipt Date: 20060725
  Transmission Date: 20070707
  Serious: No
  Sender: FDA-Public Use
  Company Number: PAR-4156-AE

PATIENT
  Age: 42 Year
  Sex: Female
  Weight: 54.5 kg

DRUGS (1)
  1. PAROXETINE HCL [Suspect]
     Indication: DRUG USE FOR UNKNOWN INDICATION
     Dosage: 40MG TWICE PER DAY
     Route: 048
     Dates: start: 20060620

REACTIONS (5)
  - ECZEMA [None]
  - EYE SWELLING [None]
  - HYPERSENSITIVITY [None]
  - LOCAL SWELLING [None]
  - RASH PRURITIC [None]
